FAERS Safety Report 8442239-4 (Version None)
Quarter: 2012Q2

REPORT INFORMATION
  Report Type: 
  Country: None (occurrence: None)
  Receive Date: 20120615
  Receipt Date: 20120608
  Transmission Date: 20120825
  Serious: Yes (Death, Hospitalization)
  Sender: FDA-Public Use
  Company Number: FR-BAXTER-2012BAX007948

PATIENT
  Sex: Male

DRUGS (14)
  1. TEMESTA                            /00273201/ [Concomitant]
     Route: 065
  2. MIRTAZAPINE [Concomitant]
     Route: 065
  3. ACETAMINOPHEN [Concomitant]
     Route: 065
  4. SOTALOL HCL [Concomitant]
     Route: 065
  5. PRAVASTATIN [Concomitant]
     Route: 065
  6. ZANTAC [Concomitant]
     Route: 065
  7. CYCLOPHOSPHAMIDE [Suspect]
     Route: 042
     Dates: start: 20120210, end: 20120212
  8. FLUDARA [Suspect]
     Route: 042
     Dates: start: 20120210, end: 20120212
  9. MABTHERA [Suspect]
     Route: 042
     Dates: start: 20120322, end: 20120322
  10. VASTAREL [Concomitant]
     Route: 065
  11. POTASSIUM CHLORIDE [Concomitant]
     Route: 065
  12. CYCLOPHOSPHAMIDE [Suspect]
     Route: 065
     Dates: start: 20120319, end: 20120321
  13. FLUDARA [Suspect]
  14. MABTHERA [Suspect]
     Route: 042
     Dates: start: 20120213, end: 20120213

REACTIONS (2)
  - HAEMOLYTIC ANAEMIA [None]
  - CARDIAC ARREST [None]
